FAERS Safety Report 15690979 (Version 1)
Quarter: 2018Q4

REPORT INFORMATION
  Report Type: Spontaneous
  Country: US (occurrence: US)
  Receive Date: 20181205
  Receipt Date: 20181205
  Transmission Date: 20190205
  Serious: Yes (Other)
  Sender: FDA-Public Use
  Company Number: None

PATIENT
  Age: 78 Year
  Sex: Male
  Weight: 82.35 kg

DRUGS (10)
  1. FLUCONAZOLE. [Concomitant]
     Active Substance: FLUCONAZOLE
     Dates: start: 20180518, end: 20180820
  2. TERBENAFINE [Concomitant]
     Dates: start: 20170404, end: 20170717
  3. LISINOPRIL. [Concomitant]
     Active Substance: LISINOPRIL
  4. DOXYCYCLINE. [Concomitant]
     Active Substance: DOXYCYCLINE
  5. METOPROLOL. [Concomitant]
     Active Substance: METOPROLOL
  6. CARVEDILOL. [Concomitant]
     Active Substance: CARVEDILOL
  7. METFORMIN [Concomitant]
     Active Substance: METFORMIN HYDROCHLORIDE
  8. ASPIRIN 81MG [Concomitant]
     Active Substance: ASPIRIN
  9. ATORVASTATIN [Suspect]
     Active Substance: ATORVASTATIN
     Indication: HYPERLIPIDAEMIA
     Route: 048
     Dates: start: 20160101, end: 20180612
  10. INSULIN 70/30 [Concomitant]
     Active Substance: INSULIN HUMAN

REACTIONS (2)
  - Muscle necrosis [None]
  - Autoimmune disorder [None]

NARRATIVE: CASE EVENT DATE: 20180612
